FAERS Safety Report 6601039-8 (Version None)
Quarter: 2010Q1

REPORT INFORMATION
  Report Type: 
  Country: None (occurrence: None)
  Receive Date: 20100225
  Receipt Date: 20100217
  Transmission Date: 20100710
  Serious: Yes (Other)
  Sender: FDA-Public Use
  Company Number: US-JNJFOC-20091206528

PATIENT
  Sex: Male
  Weight: 95.26 kg

DRUGS (11)
  1. FENTANYL-100 [Suspect]
     Indication: BACK PAIN
     Route: 062
  2. FENTANYL-100 [Suspect]
     Route: 062
  3. FENTANYL-100 [Suspect]
     Route: 062
  4. SEROQUEL [Suspect]
     Indication: SLEEP DISORDER
     Route: 048
  5. TRAZODONE [Concomitant]
     Indication: SLEEP DISORDER
     Route: 048
  6. LITHIUM CARBONATE [Concomitant]
     Indication: BIPOLAR DISORDER
     Route: 048
  7. PRAVACHOL [Concomitant]
     Indication: BLOOD CHOLESTEROL
     Route: 048
  8. DIAZEPAM [Concomitant]
     Indication: NERVOUS SYSTEM DISORDER
     Route: 065
  9. LISINOPRIL [Concomitant]
     Indication: BLOOD PRESSURE
     Route: 048
  10. HYDROCODONE [Concomitant]
     Indication: PAIN
     Dosage: DOSE: 5/500 MG EVERY 4 HOURS
     Route: 048
  11. FLEXERIL [Concomitant]
     Indication: PAIN

REACTIONS (9)
  - BIPOLAR DISORDER [None]
  - DRUG EFFECT INCREASED [None]
  - DRUG INEFFECTIVE [None]
  - FORMICATION [None]
  - MUSCLE SPASMS [None]
  - NAUSEA [None]
  - PAIN [None]
  - THERAPEUTIC RESPONSE DECREASED [None]
  - WITHDRAWAL SYNDROME [None]
